FAERS Safety Report 9110367 (Version 1)
Quarter: 2013Q1

REPORT INFORMATION
  Report Type: Spontaneous
  Country: US (occurrence: US)
  Receive Date: 20130219
  Receipt Date: 20130219
  Transmission Date: 20140127
  Serious: No
  Sender: FDA-Public Use
  Company Number: US-BRISTOL-MYERS SQUIBB COMPANY-16575730

PATIENT
  Age: 83 Year
  Sex: Male

DRUGS (2)
  1. ORENCIA FOR INJ [Suspect]
     Dosage: NO OF INF: 3,2ND INF:23APR12,LAST INF WAS ON 03MAY2012.
     Route: 042
     Dates: start: 20120326
  2. METHOTREXATE [Suspect]

REACTIONS (1)
  - Lip swelling [Unknown]
